FAERS Safety Report 15483595 (Version 2)
Quarter: 2018Q4

REPORT INFORMATION
  Report Type: Spontaneous
  Country: US (occurrence: US)
  Receive Date: 20181010
  Receipt Date: 20181205
  Transmission Date: 20190205
  Serious: Yes (Hospitalization)
  Sender: FDA-Public Use
  Company Number: US-SA-2018SA277228

PATIENT
  Sex: Female

DRUGS (1)
  1. TOUJEO [Suspect]
     Active Substance: INSULIN GLARGINE
     Indication: TYPE 2 DIABETES MELLITUS
     Dosage: 80 IU, QD
     Route: 065

REACTIONS (9)
  - Blood glucose increased [Unknown]
  - Product use issue [Unknown]
  - Muscle injury [Unknown]
  - Fall [Unknown]
  - Device operational issue [Unknown]
  - Blood lactic acid [Unknown]
  - Back pain [Unknown]
  - Renal failure [Unknown]
  - Confusional state [Unknown]
